FAERS Safety Report 5512298-7 (Version None)
Quarter: 2007Q4

REPORT INFORMATION
  Report Type: 
  Country: None (occurrence: None)
  Receive Date: 20071112
  Receipt Date: 20070926
  Transmission Date: 20080405
  Serious: No
  Sender: FDA-Public Use
  Company Number: A0684355A

PATIENT
  Age: 42 Year
  Sex: Female

DRUGS (2)
  1. VERAMYST [Suspect]
     Dosage: 2PUFF PER DAY
     Route: 045
     Dates: start: 20070801
  2. HYDROCORTISONE [Concomitant]

REACTIONS (1)
  - PHARYNGOLARYNGEAL PAIN [None]
